FAERS Safety Report 5340490-3 (Version None)
Quarter: 2007Q2

REPORT INFORMATION
  Report Type: 
  Country: None (occurrence: None)
  Receive Date: 20070405
  Receipt Date: 20070117
  Transmission Date: 20071010
  Serious: Yes (Other)
  Sender: FDA-Public Use
  Company Number: US200612000617

PATIENT
  Age: 27 Year
  Sex: Female

DRUGS (2)
  1. CYMBALTA [Suspect]
     Indication: DEPRESSION
     Dosage: 30 MG, DAILY (1/D)
     Dates: start: 20061122, end: 20061125
  2. ESZOPICLONE (ESZOPICLONE) [Concomitant]

REACTIONS (6)
  - HEADACHE [None]
  - MANIA [None]
  - MYALGIA [None]
  - NIGHT SWEATS [None]
  - SEROTONIN SYNDROME [None]
  - VISION BLURRED [None]
